FAERS Safety Report 5192350-9 (Version None)
Quarter: 2006Q4

REPORT INFORMATION
  Report Type: 
  Country: None (occurrence: None)
  Receive Date: 20061227
  Receipt Date: 20060327
  Transmission Date: 20070319
  Serious: Yes (Other)
  Sender: FDA-Public Use
  Company Number: FR-BRISTOL-MYERS SQUIBB COMPANY-13329677

PATIENT
  Age: 43 Year
  Sex: Female

DRUGS (3)
  1. SUSTIVA [Suspect]
     Indication: HIV INFECTION
     Route: 048
     Dates: start: 20051201, end: 20060201
  2. COMBIVIR [Concomitant]
  3. VIRAMUNE [Concomitant]
     Dates: start: 20060201

REACTIONS (3)
  - ABORTION [None]
  - METRORRHAGIA [None]
  - PREGNANCY [None]
